FAERS Safety Report 18599200 (Version 3)
Quarter: 2021Q1

REPORT INFORMATION
  Report Type: Spontaneous
  Country: BE (occurrence: BE)
  Receive Date: 20201210
  Receipt Date: 20210105
  Transmission Date: 20210419
  Serious: Yes (Other)
  Sender: FDA-Public Use
  Company Number: BE-ASTELLAS-2020US043154

PATIENT
  Age: 76 Year
  Sex: Male
  Weight: 65 kg

DRUGS (4)
  1. COVERSYL [PERINDOPRIL ARGININE] [Concomitant]
     Active Substance: PERINDOPRIL ARGININE
     Indication: HYPERTENSION
     Dosage: UNK UNK, UNKNOWN FREQ. (YEARS)
     Route: 065
  2. BISOPROLOL [Concomitant]
     Active Substance: BISOPROLOL
     Indication: HYPERTENSION
     Dosage: 5 MG, UNKNOWN FREQ. (YEARS)
     Route: 065
  3. XTANDI [Suspect]
     Active Substance: ENZALUTAMIDE
     Indication: HORMONE-REFRACTORY PROSTATE CANCER
     Route: 048
     Dates: start: 20201019
  4. ASAFLOW [Concomitant]
     Active Substance: ASPIRIN
     Indication: CORONARY ARTERY DISEASE
     Dosage: 160 UNK, UNKNOWN FREQ. (YEARS)
     Route: 065

REACTIONS (1)
  - Epilepsy [Recovered/Resolved]

NARRATIVE: CASE EVENT DATE: 20201127
